FAERS Safety Report 8584010-9 (Version None)
Quarter: 2012Q3

REPORT INFORMATION
  Report Type: 
  Country: None (occurrence: None)
  Receive Date: 20120810
  Receipt Date: 20120726
  Transmission Date: 20120928
  Serious: Yes (Other)
  Sender: FDA-Public Use
  Company Number: US-009507513-1207USA011529

PATIENT

DRUGS (2)
  1. VICTRELIS [Suspect]
     Dosage: UNK MG, UNK
     Route: 048
  2. PEG-INTRON [Suspect]

REACTIONS (3)
  - NEUTROPENIA [None]
  - ANAEMIA [None]
  - LEUKOPENIA [None]
